FAERS Safety Report 13346812 (Version 1)
Quarter: 2017Q1

REPORT INFORMATION
  Report Type: Spontaneous
  Country: US (occurrence: US)
  Receive Date: 20170317
  Receipt Date: 20170317
  Transmission Date: 20170428
  Serious: No
  Sender: FDA-Public Use
  Company Number: US-PERRIGO-16US015462

PATIENT
  Age: 53 Year
  Sex: Male
  Weight: 101.13 kg

DRUGS (1)
  1. NICOTINE POLACRILEX [Suspect]
     Active Substance: NICOTINE
     Indication: SMOKING CESSATION THERAPY
     Dosage: 4 MG, APPROXIMATELY 20 TIMES DAILY
     Route: 002
     Dates: start: 20160112

REACTIONS (5)
  - Wrong technique in product usage process [Recovered/Resolved]
  - Diarrhoea [Recovered/Resolved]
  - Overdose [Recovered/Resolved]
  - Incorrect drug administration duration [Unknown]
  - Flatulence [Recovered/Resolved]

NARRATIVE: CASE EVENT DATE: 2016
